FAERS Safety Report 8903332 (Version 5)
Quarter: 2013Q1

REPORT INFORMATION
  Report Type: Report from Study
  Country: JP (occurrence: JP)
  Receive Date: 20121113
  Receipt Date: 20130108
  Transmission Date: 20140127
  Serious: Yes (Hospitalization)
  Sender: FDA-Public Use
  Company Number: JP-PURDUE-USA-2012-0095565

PATIENT
  Age: 74 Year
  Sex: Male

DRUGS (13)
  1. TRAMADOL (SIMILAR TO NDA 21-745) [Suspect]
     Indication: OSTEOARTHRITIS
     Dosage: 100 MG, UNK
     Route: 048
     Dates: start: 20120927, end: 20121003
  2. TRAMADOL (SIMILAR TO NDA 21-745) [Suspect]
     Dosage: 200 MG, UNK
     Route: 048
     Dates: start: 20121004, end: 20121010
  3. TRAMADOL (SIMILAR TO NDA 21-745) [Suspect]
     Dosage: 300 MG, UNK
     Route: 048
     Dates: start: 20121011, end: 20121017
  4. TRAMADOL (SIMILAR TO NDA 21-745) [Suspect]
     Dosage: 400 MG, UNK
     Route: 048
     Dates: start: 20121018, end: 20121024
  5. TRAMADOL (SIMILAR TO NDA 21-745) [Suspect]
     Dosage: 400 MG, UNK
     Route: 048
     Dates: start: 20121025, end: 20121029
  6. OSPAIN [Suspect]
     Indication: OSTEOARTHRITIS
     Dosage: 400 MG, UNK
     Route: 048
     Dates: start: 20120830
  7. PROHEPARUM [Concomitant]
     Indication: ALCOHOLIC LIVER DISEASE
     Dosage: 6 UNK, UNK
     Route: 048
     Dates: start: 19990502, end: 20121026
  8. AMOBAN [Concomitant]
     Indication: INSOMNIA
     Dosage: 7.5 MG, DAILY
     Route: 048
     Dates: start: 20080719, end: 20121025
  9. DEPAS [Concomitant]
     Indication: INSOMNIA
     Dosage: 0.5 MG, UNK
     Route: 048
     Dates: start: 20061004, end: 20121025
  10. MICARDIS [Concomitant]
     Indication: HYPERTENSION
     Dosage: 40 MG, DAILY
     Route: 048
     Dates: start: 20041023, end: 20121026
  11. NIFEDIPINE [Concomitant]
     Indication: HYPERTENSION
     Dosage: 20 MG, DAILY
     Route: 048
     Dates: start: 20091002, end: 20121025
  12. REBAMIPIDE [Concomitant]
     Indication: GASTRITIS PROPHYLAXIS
     Dosage: 200 MG, UNK
     Route: 048
     Dates: start: 20120830, end: 20121026
  13. MAGLAX [Concomitant]
     Indication: CONSTIPATION
     Dosage: 330 MG, UNK
     Route: 048
     Dates: start: 20120928, end: 20121025

REACTIONS (1)
  - Gastric ulcer haemorrhage [Recovered/Resolved]
